FAERS Safety Report 11564620 (Version 1)
Quarter: 2015Q3

REPORT INFORMATION
  Report Type: Spontaneous
  Country: US (occurrence: US)
  Receive Date: 20150916
  Receipt Date: 20150916
  Transmission Date: 20151125
  Serious: No
  Sender: FDA-Public Use
  Company Number: US-ELI_LILLY_AND_COMPANY-US200903006379

PATIENT
  Sex: Female

DRUGS (2)
  1. VITAMIN D [Concomitant]
     Active Substance: CHOLECALCIFEROL
     Dosage: 50000 U, UNK
  2. FORTEO [Suspect]
     Active Substance: TERIPARATIDE

REACTIONS (3)
  - Pollakiuria [Unknown]
  - Insomnia [Unknown]
  - Dry eye [Not Recovered/Not Resolved]
